FAERS Safety Report 5201455-5 (Version None)
Quarter: 2007Q1

REPORT INFORMATION
  Report Type: 
  Country: None (occurrence: None)
  Receive Date: 20070108
  Receipt Date: 20061227
  Transmission Date: 20070707
  Serious: Yes (Life-Threatening, Hospitalization)
  Sender: FDA-Public Use
  Company Number: FR-SANOFI-SYNTHELABO-A02200603337

PATIENT
  Sex: Male
  Weight: 2.6 kg

DRUGS (2)
  1. KERLONE [Suspect]
     Route: 064
     Dates: end: 19970415
  2. KERLONE [Suspect]
     Route: 064
     Dates: end: 19970415

REACTIONS (8)
  - BRADYCARDIA FOETAL [None]
  - CAESAREAN SECTION [None]
  - DRUG EXPOSURE DURING PREGNANCY [None]
  - FOETAL DISTRESS SYNDROME [None]
  - FOETAL GROWTH RETARDATION [None]
  - HYPOGLYCAEMIA NEONATAL [None]
  - MECONIUM STAIN [None]
  - TRICUSPID VALVE INCOMPETENCE [None]
